FAERS Safety Report 9745366 (Version 1)
Quarter: 2013Q4

REPORT INFORMATION
  Report Type: Report from Study
  Country: VE (occurrence: VE)
  Receive Date: 20131211
  Receipt Date: 20131211
  Transmission Date: 20140711
  Serious: Yes (Hospitalization, Other)
  Sender: FDA-Public Use
  Company Number: PHHY2013VE142556

PATIENT
  Age: 26 Year
  Sex: Male

DRUGS (4)
  1. LEPONEX [Suspect]
     Indication: SCHIZOPHRENIA
     Dosage: 125 MG, DAILY (START SINCE 8 YEARS AGO)
     Route: 048
  2. LEPONEX [Suspect]
     Dosage: 50 MG,  DAILY (6 MONTHS AGO)
  3. LEPONEX [Suspect]
     Dosage: 450 MG, PER DAY
  4. LEPONEX [Suspect]
     Dosage: DECREASED UNTILL 125 MG, PER DAY

REACTIONS (2)
  - Schizophrenia [Recovered/Resolved]
  - Dengue fever [Recovered/Resolved]
